FAERS Safety Report 17174775 (Version 1)
Quarter: 2019Q4

REPORT INFORMATION
  Report Type: Spontaneous
  Country: US (occurrence: US)
  Receive Date: 20191219
  Receipt Date: 20191219
  Transmission Date: 20200122
  Serious: Yes (Other)
  Sender: FDA-Public Use
  Company Number: US-UCBSA-2014000558

PATIENT
  Age: 29 Year
  Sex: Female

DRUGS (7)
  1. DIFLUCAN [Concomitant]
     Active Substance: FLUCONAZOLE
     Dosage: 2 TABS ON DAY 1 AND 1 TAB DAILY FOR 9 DAYS
  2. CIMZIA [Suspect]
     Active Substance: CERTOLIZUMAB PEGOL
     Indication: CROHN^S DISEASE
     Dosage: 400 MG, MONTHLY (QM) (2X200MG)
     Route: 058
     Dates: start: 2011
  3. PREDNISONE. [Concomitant]
     Active Substance: PREDNISONE
     Dosage: 10MG, 3 DAILY
     Route: 048
  4. CEPHALEXIN PHARMANIAGA [Concomitant]
  5. MINASTTRIN 24 FE [Concomitant]
     Dosage: 1 DF, ONCE DAILY (QD)
     Route: 048
  6. MINASTTRIN 24 FE [Concomitant]
     Dosage: 1 DF, ONCE DAILY (QD)
     Route: 048
  7. SUPREP BOWEL PREP SOLN [Concomitant]
     Indication: CROHN^S DISEASE
     Dosage: 2 DIVIDED DOSES

REACTIONS (11)
  - Paronychia [Unknown]
  - Fatigue [Unknown]
  - Furuncle [Unknown]
  - Pyrexia [Unknown]
  - Night sweats [Unknown]
  - Libido decreased [Unknown]
  - Crohn^s disease [Unknown]
  - Haemorrhoids [Unknown]
  - Weight decreased [Unknown]
  - Clostridium difficile colitis [Not Recovered/Not Resolved]
  - Maternal exposure during pregnancy [Unknown]

NARRATIVE: CASE EVENT DATE: 201308
